FAERS Safety Report 4963290-2 (Version None)
Quarter: 2006Q2

REPORT INFORMATION
  Report Type: 
  Country: None (occurrence: None)
  Receive Date: 20060404
  Receipt Date: 20060404
  Transmission Date: 20061013
  Serious: No
  Sender: FDA-Public Use
  Company Number: None

PATIENT
  Sex: Male
  Weight: 68.9467 kg

DRUGS (5)
  1. PEG-INTERFERON  ALFA-2B     120MCG    SCHERING [Suspect]
     Indication: HEPATITIS C
     Dosage: 120MCG   WEEKLY   SQ
     Route: 058
     Dates: start: 20051116, end: 20060207
  2. RIBAVIRIN [Suspect]
     Indication: HEPATITIS C
     Dosage: 400MG  8 PM,   400MG  AM    BID    PO
     Route: 048
     Dates: start: 20051116, end: 20060207
  3. DIVALPROEX SODIUM [Concomitant]
  4. DOCUSATE [Concomitant]
  5. OLANZAPINE [Concomitant]

REACTIONS (1)
  - ANAEMIA [None]
